FAERS Safety Report 17872376 (Version 1)
Quarter: 2020Q2

REPORT INFORMATION
  Report Type: Report from Study
  Country: MX (occurrence: MX)
  Receive Date: 20200608
  Receipt Date: 20200608
  Transmission Date: 20200714
  Serious: Yes (Other)
  Sender: FDA-Public Use
  Company Number: PHHY2018MX102207

PATIENT
  Age: 50 Year
  Sex: Female
  Weight: 69 kg

DRUGS (2)
  1. MECLIZINE [Concomitant]
     Active Substance: MECLIZINE HYDROCHLORIDE
     Indication: PRODUCT USED FOR UNKNOWN INDICATION
     Dosage: 1 DF, QD (FOR 5 DAYS)
     Route: 048
  2. GALVUS MET [Suspect]
     Active Substance: METFORMIN HYDROCHLORIDE\VILDAGLIPTIN
     Indication: DIABETES MELLITUS
     Dosage: 1 DF (METFORMIN 850 MG, VILDAGLIPTIN 50 MG), BID (IN THE MORNING AND AT NIGHT)
     Route: 048
     Dates: start: 20130224

REACTIONS (20)
  - Insomnia [Recovering/Resolving]
  - Influenza [Unknown]
  - Fatigue [Unknown]
  - Asthenia [Unknown]
  - Blood triglycerides increased [Recovering/Resolving]
  - Abdominal discomfort [Recovering/Resolving]
  - Back pain [Unknown]
  - Blood cholesterol increased [Recovering/Resolving]
  - Blood glucose increased [Recovering/Resolving]
  - Feeling cold [Unknown]
  - Musculoskeletal pain [Unknown]
  - Hypertension [Recovered/Resolved]
  - Anxiety [Unknown]
  - Tension [Unknown]
  - Balance disorder [Unknown]
  - Contusion [Unknown]
  - Vomiting [Recovering/Resolving]
  - Nervousness [Recovering/Resolving]
  - Cough [Unknown]
  - Dizziness [Recovering/Resolving]

NARRATIVE: CASE EVENT DATE: 20180909
